FAERS Safety Report 9423092 (Version 2)
Quarter: 2013Q3

REPORT INFORMATION
  Report Type: Spontaneous
  Country: US (occurrence: US)
  Receive Date: 20130726
  Receipt Date: 20130806
  Transmission Date: 20140515
  Serious: No
  Sender: FDA-Public Use
  Company Number: US-009507513-1307USA007570

PATIENT
  Sex: Male

DRUGS (1)
  1. AFRIN EXTRA MOISTURIZING NASAL SPRAY [Suspect]
     Indication: PRODUCT USED FOR UNKNOWN INDICATION
     Dosage: UNK, UNKNOWN
     Route: 045

REACTIONS (3)
  - Wrong technique in drug usage process [Unknown]
  - Incorrect product storage [Unknown]
  - Product odour abnormal [Unknown]
